FAERS Safety Report 6278540-2 (Version None)
Quarter: 2009Q3

REPORT INFORMATION
  Report Type: 
  Country: None (occurrence: None)
  Receive Date: 20090722
  Receipt Date: 20080723
  Transmission Date: 20100115
  Serious: No
  Sender: FDA-Public Use
  Company Number: US-BAUSCH-2008BL003227

PATIENT
  Age: 49 Year
  Sex: Female
  Weight: 80 kg

DRUGS (2)
  1. OPCON-A [Suspect]
     Indication: EYE ALLERGY
     Route: 047
     Dates: start: 20080723, end: 20080723
  2. FEMARA [Concomitant]
     Indication: BREAST CANCER
     Route: 048

REACTIONS (4)
  - HEADACHE [None]
  - LACRIMATION INCREASED [None]
  - MYDRIASIS [None]
  - VISION BLURRED [None]
